FAERS Safety Report 16273662 (Version 3)
Quarter: 2019Q2

REPORT INFORMATION
  Report Type: Report from Study
  Country: None (occurrence: IL)
  Receive Date: 20190506
  Receipt Date: 20190523
  Transmission Date: 20190711
  Serious: Yes (Life-Threatening, Hospitalization, Other)
  Sender: FDA-Public Use
  Company Number: IL-ABBVIE-19K-082-2735071-00

PATIENT
  Age: 67 Year
  Sex: Male
  Weight: 81 kg

DRUGS (14)
  1. VENCLEXTA [Suspect]
     Active Substance: VENETOCLAX
     Indication: CHRONIC LYMPHOCYTIC LEUKAEMIA
     Route: 048
     Dates: start: 20190304, end: 2019
  2. FUROSEMIDE. [Concomitant]
     Active Substance: FUROSEMIDE
     Indication: CARDIAC FAILURE
     Dates: start: 20190309, end: 20190309
  3. ELIQUIS [Concomitant]
     Active Substance: APIXABAN
     Indication: THROMBOSIS PROPHYLAXIS
     Dates: start: 20170919
  4. LIPITOR [Concomitant]
     Active Substance: ATORVASTATIN CALCIUM
     Indication: HYPERLIPIDAEMIA
     Dates: start: 20101125
  5. VABEN [Concomitant]
     Active Substance: OXAZEPAM
     Indication: INSOMNIA
     Dates: start: 20170719
  6. AMARYL [Concomitant]
     Active Substance: GLIMEPIRIDE
     Indication: DIABETES MELLITUS
     Dates: start: 20140526
  7. ZYLOL [Concomitant]
     Indication: PROPHYLAXIS
     Dates: start: 20190212
  8. PRALUENT [Concomitant]
     Active Substance: ALIROCUMAB
     Indication: CARDIOVASCULAR DISORDER
     Dates: start: 20190212
  9. ACYCLOVIR. [Concomitant]
     Active Substance: ACYCLOVIR
     Indication: HERPES ZOSTER
     Dates: start: 20181227
  10. CITALOPRAM [Concomitant]
     Active Substance: CITALOPRAM HYDROBROMIDE
     Indication: ANXIETY
     Dates: start: 20161117
  11. LANTON [Concomitant]
     Indication: GASTRIC PH INCREASED
     Dates: start: 20121125
  12. CILAZAPRIL [Concomitant]
     Active Substance: CILAZAPRIL ANHYDROUS
     Indication: HYPERTENSION
     Dates: start: 20050515
  13. JANUET [Concomitant]
     Active Substance: METFORMIN HYDROCHLORIDE\SITAGLIPTIN PHOSPHATE
     Indication: DIABETES MELLITUS
     Dates: start: 20190122
  14. BISOPROLOL [Concomitant]
     Active Substance: BISOPROLOL
     Indication: CARDIAC DISORDER
     Dates: start: 20180123

REACTIONS (7)
  - Atrial fibrillation [Recovered/Resolved]
  - Carotid endarterectomy [Recovered/Resolved]
  - Pollakiuria [Recovered/Resolved]
  - Haematoma [Not Recovered/Not Resolved]
  - Asthenia [Not Recovered/Not Resolved]
  - Diarrhoea [Not Recovered/Not Resolved]
  - Neutropenia [Not Recovered/Not Resolved]

NARRATIVE: CASE EVENT DATE: 20190311
